FAERS Safety Report 16682721 (Version 1)
Quarter: 2019Q3

REPORT INFORMATION
  Report Type: Spontaneous
  Country: US (occurrence: US)
  Receive Date: 20190808
  Receipt Date: 20190808
  Transmission Date: 20191004
  Serious: No
  Sender: FDA-Public Use
  Company Number: US-PFIZER INC-2019338824

PATIENT
  Age: 64 Year
  Sex: Female

DRUGS (4)
  1. ELAVIL [ALLOPURINOL] [Suspect]
     Active Substance: ALLOPURINOL
     Dosage: UNK
  2. HALDOL [Suspect]
     Active Substance: HALOPERIDOL
     Dosage: UNK
  3. METFORMIN [Suspect]
     Active Substance: METFORMIN HYDROCHLORIDE
     Dosage: UNK
  4. GABAPENTIN. [Suspect]
     Active Substance: GABAPENTIN
     Dosage: UNK

REACTIONS (1)
  - Drug hypersensitivity [Unknown]
